FAERS Safety Report 22376867 (Version 1)
Quarter: 2023Q2

REPORT INFORMATION
  Report Type: Spontaneous
  Country: IT (occurrence: IT)
  Receive Date: 20230529
  Receipt Date: 20230529
  Transmission Date: 20230722
  Serious: Yes (Other)
  Sender: FDA-Public Use
  Company Number: None

PATIENT
  Age: 18 Year
  Sex: Female

DRUGS (4)
  1. OLANZAPINE [Suspect]
     Active Substance: OLANZAPINE
     Indication: Product used for unknown indication
     Dosage: 1 DOSAGE FORM
     Route: 065
     Dates: start: 20230411, end: 20230411
  2. EN [Suspect]
     Active Substance: DELORAZEPAM
     Indication: Product used for unknown indication
     Dosage: 8 DOSAGE FORM
     Route: 065
     Dates: start: 20230411, end: 20230411
  3. CHLORPROMAZINE [Suspect]
     Active Substance: CHLORPROMAZINE
     Indication: Product used for unknown indication
     Dosage: 4 DOSAGE FORM
     Route: 065
     Dates: start: 20230411, end: 20230411
  4. ZOLOFT [Suspect]
     Active Substance: SERTRALINE HYDROCHLORIDE
     Indication: Product used for unknown indication
     Dosage: 2 DOSAGE FORM
     Route: 065
     Dates: start: 20230411, end: 20230411

REACTIONS (3)
  - Drug abuse [Recovered/Resolved]
  - Vertigo [Recovered/Resolved]
  - Somnolence [Recovered/Resolved]

NARRATIVE: CASE EVENT DATE: 20230411
